FAERS Safety Report 18109412 (Version 1)
Quarter: 2020Q3

REPORT INFORMATION
  Report Type: Spontaneous
  Country: US (occurrence: US)
  Receive Date: 20200804
  Receipt Date: 20200804
  Transmission Date: 20201103
  Serious: No
  Sender: FDA-Public Use
  Company Number: None

PATIENT
  Age: 54 Year
  Sex: Female
  Weight: 93.5 kg

DRUGS (2)
  1. ONDANSETRON [Concomitant]
     Active Substance: ONDANSETRON
     Dates: start: 20200725
  2. REMDESIVIR. [Suspect]
     Active Substance: REMDESIVIR
     Indication: COVID-19
     Route: 042
     Dates: start: 20200727, end: 20200731

REACTIONS (4)
  - Phlebitis [None]
  - Pain [None]
  - Tissue infiltration [None]
  - Oedema [None]

NARRATIVE: CASE EVENT DATE: 20200727
